FAERS Safety Report 8158666-9 (Version None)
Quarter: 2012Q1

REPORT INFORMATION
  Report Type: 
  Country: None (occurrence: None)
  Receive Date: 20120217
  Receipt Date: 20120203
  Transmission Date: 20120608
  Serious: Yes (Other)
  Sender: FDA-Public Use
  Company Number: BR-1190380

PATIENT
  Age: 28 Year
  Sex: Male
  Weight: 110 kg

DRUGS (3)
  1. VIGAMOX [Suspect]
     Indication: SUTURE REMOVAL
     Dosage: (1 GTT BID OS OPHTHALMIC), (1 GTT BID OPHTHALMIC)
     Route: 047
     Dates: start: 20110328
  2. VIGAMOX [Suspect]
     Indication: POSTOPERATIVE CARE
     Dosage: (1 GTT BID OS OPHTHALMIC), (1 GTT BID OPHTHALMIC)
     Route: 047
     Dates: start: 20110328
  3. PREDNISOLONE ACETATE [Suspect]
     Indication: POSTOPERATIVE CARE
     Dosage: (1 GTT 1X/12 HOURS OS OPHTHALMIC)
     Route: 047
     Dates: start: 20110301

REACTIONS (3)
  - ERYTHEMA OF EYELID [None]
  - EYE PRURITUS [None]
  - CATARACT [None]
